FAERS Safety Report 19275052 (Version 1)
Quarter: 2021Q2

REPORT INFORMATION
  Report Type: Spontaneous
  Country: BR (occurrence: BR)
  Receive Date: 20210519
  Receipt Date: 20210519
  Transmission Date: 20210717
  Serious: Yes (Hospitalization, Other)
  Sender: FDA-Public Use
  Company Number: BR-009507513-2105BRA003372

PATIENT
  Age: 76 Year
  Sex: Male
  Weight: 57.3 kg

DRUGS (4)
  1. KEYTRUDA [Suspect]
     Active Substance: PEMBROLIZUMAB
     Indication: LUNG NEOPLASM MALIGNANT
     Dosage: 200 MG EVERY 21 DAYS
     Route: 042
     Dates: start: 202101, end: 202101
  2. KEYTRUDA [Suspect]
     Active Substance: PEMBROLIZUMAB
     Dosage: 200 MG EVERY 21 DAYS
     Route: 042
     Dates: start: 20210317, end: 2021
  3. KEYTRUDA [Suspect]
     Active Substance: PEMBROLIZUMAB
     Dosage: 200 MG EVERY 21 DAYS
     Route: 042
     Dates: start: 20210128, end: 20210311
  4. KEYTRUDA [Suspect]
     Active Substance: PEMBROLIZUMAB
     Dosage: 200 MG EVERY 21 DAYS
     Route: 042
     Dates: start: 2021

REACTIONS (8)
  - Hepatotoxicity [Unknown]
  - Hypotension [Unknown]
  - Nephropathy toxic [Unknown]
  - Diarrhoea [Recovered/Resolved]
  - Fatigue [Unknown]
  - General physical health deterioration [Unknown]
  - Oxygen saturation decreased [Unknown]
  - Asthenia [Unknown]

NARRATIVE: CASE EVENT DATE: 2021
